FAERS Safety Report 8762769 (Version 1)
Quarter: 2012Q4

REPORT INFORMATION
  Report Type: 
  Country: CH (occurrence: CH)
  Receive Date: 20120828
  Receipt Date: 20120828
  Transmission Date: 20130627
  Serious: Yes (Hospitalization, Other)
  Sender: FDA-Public Use
  Company Number: CH-BRISTOL-MYERS SQUIBB COMPANY-16862229

PATIENT
  Age: 64 Year
  Sex: Male
  Weight: 79 kg

DRUGS (8)
  1. YERVOY [Suspect]
     Indication: SKIN CANCER
     Dosage: duration of use: 45 days
     Route: 041
     Dates: start: 20120502, end: 20120615
  2. LASIX [Concomitant]
     Route: 048
  3. KALIUM CHLORATUM [Concomitant]
     Route: 048
  4. VOLTAREN [Concomitant]
     Route: 048
     Dates: end: 201207
  5. NOVALGIN [Concomitant]
     Route: 048
  6. PANTOZOL [Concomitant]
     Route: 048
  7. ROHYPNOL [Concomitant]
     Route: 048
     Dates: end: 201207
  8. PREDNISONE [Concomitant]
     Route: 048
     Dates: end: 201207

REACTIONS (6)
  - Pneumonia [Recovering/Resolving]
  - Respiratory failure [Recovering/Resolving]
  - Oedema peripheral [Recovering/Resolving]
  - Arthralgia [Recovering/Resolving]
  - Hepatic enzyme increased [Recovering/Resolving]
  - Rash papular [Unknown]
